FAERS Safety Report 23670190 (Version 1)
Quarter: 2024Q1

REPORT INFORMATION
  Report Type: Spontaneous
  Country: FR (occurrence: FR)
  Receive Date: 20240325
  Receipt Date: 20240325
  Transmission Date: 20240410
  Serious: Yes (Hospitalization)
  Sender: FDA-Public Use
  Company Number: FR-BIOGEN-2024BI01256467

PATIENT
  Age: 70 Year
  Sex: Male

DRUGS (1)
  1. VUMERITY [Suspect]
     Active Substance: DIROXIMEL FUMARATE
     Indication: Multiple sclerosis
     Dosage: 2 CAPSULES IN THE MORNING AND TWO IN THE EVENING
     Route: 050
     Dates: start: 202209

REACTIONS (1)
  - Eosinophilic myocarditis [Not Recovered/Not Resolved]

NARRATIVE: CASE EVENT DATE: 20230601
